FAERS Safety Report 11567294 (Version 1)
Quarter: 2015Q3

REPORT INFORMATION
  Report Type: Spontaneous
  Country: US (occurrence: US)
  Receive Date: 20150916
  Receipt Date: 20150916
  Transmission Date: 20151125
  Serious: No
  Sender: FDA-Public Use
  Company Number: US-ELI_LILLY_AND_COMPANY-US200907003499

PATIENT
  Age: 78 Year
  Sex: Female

DRUGS (5)
  1. AMLODIPINE [Concomitant]
     Active Substance: AMLODIPINE BESYLATE
  2. CORTISONE [Concomitant]
     Active Substance: CORTISONE\HYDROCORTISONE
  3. LASIX [Concomitant]
     Active Substance: FUROSEMIDE
  4. FORTEO [Suspect]
     Active Substance: TERIPARATIDE
     Dates: start: 2007, end: 20090601
  5. COLCHICINE. [Concomitant]
     Active Substance: COLCHICINE

REACTIONS (6)
  - Malaise [Unknown]
  - Blood pressure decreased [Unknown]
  - Muscle spasms [Unknown]
  - Gout [Not Recovered/Not Resolved]
  - Stress [Recovering/Resolving]
  - Asthenia [Unknown]

NARRATIVE: CASE EVENT DATE: 2009
